FAERS Safety Report 6381044-X (Version None)
Quarter: 2009Q3

REPORT INFORMATION
  Report Type: 
  Country: None (occurrence: None)
  Receive Date: 20090929
  Receipt Date: 20090925
  Transmission Date: 20100115
  Serious: Yes (Hospitalization, Disabling, Other)
  Sender: FDA-Public Use
  Company Number: US-MERCK-0902USA02865

PATIENT
  Age: 59 Year
  Sex: Female

DRUGS (3)
  1. FOSAMAX [Suspect]
     Indication: OSTEOPOROSIS
     Route: 048
     Dates: start: 20031101, end: 20050901
  2. FOSAMAX [Suspect]
     Indication: OSTEOPENIA
     Route: 048
     Dates: start: 20031101, end: 20050901
  3. BONIVA [Suspect]
     Indication: OSTEOPOROSIS
     Route: 048
     Dates: start: 20050901, end: 20070210

REACTIONS (28)
  - ANXIETY DISORDER [None]
  - ARTHRALGIA [None]
  - ATROPHIC VULVOVAGINITIS [None]
  - BACK PAIN [None]
  - BREAST DISORDER [None]
  - CONSTIPATION [None]
  - DYSURIA [None]
  - ECZEMA [None]
  - ELECTROCARDIOGRAM ABNORMAL [None]
  - ELECTROCARDIOGRAM ST SEGMENT ABNORMAL [None]
  - HEART VALVE INCOMPETENCE [None]
  - HERNIA [None]
  - HYPERSENSITIVITY [None]
  - IRRITABLE BOWEL SYNDROME [None]
  - LIPOMATOSIS [None]
  - OSTEOARTHRITIS [None]
  - OSTEOMYELITIS [None]
  - OSTEONECROSIS [None]
  - POLLAKIURIA [None]
  - PULPITIS DENTAL [None]
  - RESORPTION BONE INCREASED [None]
  - SKIN LACERATION [None]
  - SKIN ULCER [None]
  - SPIDER VEIN [None]
  - URTICARIA [None]
  - VAGINAL HAEMORRHAGE [None]
  - VEIN DISORDER [None]
  - WEIGHT INCREASED [None]
